FAERS Safety Report 9882131 (Version 2)
Quarter: 2015Q1

REPORT INFORMATION
  Report Type: Spontaneous
  Country: DK (occurrence: GB)
  Receive Date: 20140207
  Receipt Date: 20150224
  Transmission Date: 20150721
  Serious: Yes (Hospitalization)
  Sender: FDA-Public Use
  Company Number: GB-FRI-1000054023

PATIENT
  Age: 23 Year
  Sex: Female
  Weight: 68 kg

DRUGS (2)
  1. MIRENA [Concomitant]
     Active Substance: LEVONORGESTREL
     Dosage: 20 MCG
  2. CITALOPRAM [Suspect]
     Active Substance: CITALOPRAM HYDROBROMIDE
     Indication: DEPRESSION
     Dosage: 20 MG
     Route: 048
     Dates: start: 20131220

REACTIONS (5)
  - Mallory-Weiss syndrome [Recovered/Resolved]
  - Nausea [Recovered/Resolved]
  - Vomiting [Recovered/Resolved]
  - Haematemesis [Recovered/Resolved]
  - Epigastric discomfort [Recovered/Resolved]

NARRATIVE: CASE EVENT DATE: 20140111
